FAERS Safety Report 7794786-6 (Version None)
Quarter: 2011Q4

REPORT INFORMATION
  Report Type: 
  Country: None (occurrence: None)
  Receive Date: 20111004
  Receipt Date: 20110928
  Transmission Date: 20120403
  Serious: No
  Sender: FDA-Public Use
  Company Number: US-PFIZER INC-2011231137

PATIENT
  Sex: Male
  Weight: 68.934 kg

DRUGS (5)
  1. DILTIAZEM [Concomitant]
     Dosage: 120 MG, UNK
  2. ACETYLSALICYLIC ACID [Concomitant]
     Dosage: 81 MG, UNK
  3. SUTENT [Suspect]
     Dosage: 50 MG, 1X/DAY
     Route: 048
  4. NEXIUM [Concomitant]
     Dosage: 20 MG, UNK
  5. CENTRUM SILVER [Concomitant]
     Dosage: UNK

REACTIONS (5)
  - FATIGUE [None]
  - NAUSEA [None]
  - DECREASED APPETITE [None]
  - VOMITING [None]
  - WEIGHT DECREASED [None]
